FAERS Safety Report 20091759 (Version 1)
Quarter: 2021Q4

REPORT INFORMATION
  Report Type: Spontaneous
  Country: AT (occurrence: GB)
  Receive Date: 20211119
  Receipt Date: 20211119
  Transmission Date: 20220303
  Serious: Yes (Other)
  Sender: FDA-Public Use
  Company Number: AT-NAPPMUNDI-GBR-2020-0080419

PATIENT
  Age: 43 Year
  Sex: Female

DRUGS (2)
  1. TRAMADOL [Suspect]
     Active Substance: TRAMADOL
     Indication: Neck pain
     Dosage: UNK UNK, PRN
     Route: 065
  2. CODEINE [Suspect]
     Active Substance: CODEINE
     Indication: Neck pain
     Dosage: UNK UNK, QID
     Route: 065

REACTIONS (5)
  - Laziness [Unknown]
  - Hyperhidrosis [Unknown]
  - Drug dependence [Unknown]
  - Somnolence [Unknown]
  - Pruritus [Unknown]
